FAERS Safety Report 9752425 (Version 3)
Quarter: 2014Q1

REPORT INFORMATION
  Report Type: Spontaneous
  Country: US (occurrence: US)
  Receive Date: 20131213
  Receipt Date: 20140310
  Transmission Date: 20141002
  Serious: Yes (Death, Hospitalization)
  Sender: FDA-Public Use
  Company Number: US-PFIZER INC-2013353703

PATIENT
  Age: 83 Year
  Sex: Female

DRUGS (6)
  1. SUTENT [Suspect]
     Indication: RENAL CELL CARCINOMA
     Dosage: 25 MG, DAILY
     Route: 048
     Dates: start: 200912, end: 201311
  2. CLONIDINE HYDROCHLORIDE [Concomitant]
     Dosage: UNK
  3. DIOVAN (VALSARTAN) [Concomitant]
     Indication: BLOOD PRESSURE
     Dosage: UNK
  4. OXYCODONE HYDROCHLORIDE [Concomitant]
     Dosage: UNK
  5. SYNTHROID [Concomitant]
     Indication: THYROID DISORDER
     Dosage: UNK
  6. LANTUS [Concomitant]
     Indication: DIABETES MELLITUS
     Dosage: UNK

REACTIONS (2)
  - Death [Fatal]
  - Renal impairment [Recovering/Resolving]
